FAERS Safety Report 6073544-7 (Version None)
Quarter: 2009Q1

REPORT INFORMATION
  Report Type: 
  Country: None (occurrence: None)
  Receive Date: 20090211
  Receipt Date: 20090209
  Transmission Date: 20090719
  Serious: Yes (Disabling)
  Sender: FDA-Public Use
  Company Number: JP-ASTRAZENECA-2009AP01097

PATIENT
  Age: 62 Year
  Sex: Male

DRUGS (5)
  1. CRESTOR [Suspect]
     Indication: DYSLIPIDAEMIA
     Route: 048
     Dates: start: 20081118, end: 20090105
  2. HALFDIGOXIN [Concomitant]
     Route: 048
     Dates: start: 20070710
  3. ALDACTONE [Concomitant]
     Route: 048
     Dates: start: 20070710
  4. PROPYLTHIOURACIL [Concomitant]
     Route: 048
     Dates: start: 20080407
  5. WARFARIN SODIUM [Concomitant]
     Route: 048
     Dates: start: 20080602

REACTIONS (1)
  - HEPATIC FUNCTION ABNORMAL [None]
